FAERS Safety Report 4632990-6 (Version None)
Quarter: 2005Q2

REPORT INFORMATION
  Report Type: 
  Country: None (occurrence: None)
  Receive Date: 20050412
  Receipt Date: 20050328
  Transmission Date: 20051028
  Serious: Yes (Hospitalization, Disabling, Other)
  Sender: FDA-Public Use
  Company Number: US-MERCK-0503USA04904

PATIENT
  Age: 8 Week
  Sex: Male

DRUGS (5)
  1. INDOCIN I.V. [Suspect]
     Indication: PATENT DUCTUS ARTERIOSUS
     Route: 042
     Dates: start: 20050218
  2. INDOCIN I.V. [Suspect]
     Route: 042
     Dates: start: 20050225
  3. ZANTAC [Concomitant]
     Route: 065
  4. CEFTAZIDIME [Concomitant]
     Route: 065
  5. NYSTATIN [Concomitant]
     Route: 065

REACTIONS (1)
  - DRUG INEFFECTIVE [None]
